FAERS Safety Report 8558127-9 (Version None)
Quarter: 2012Q3

REPORT INFORMATION
  Report Type: 
  Country: None (occurrence: None)
  Receive Date: 20120801
  Receipt Date: 20120719
  Transmission Date: 20120928
  Serious: Yes (Life-Threatening, Disabling)
  Sender: FDA-Public Use
  Company Number: FR-ASTRAZENECA-2012SE38526

PATIENT
  Age: 972 Month
  Sex: Male
  Weight: 79 kg

DRUGS (6)
  1. ZOLADEX [Suspect]
     Route: 058
     Dates: start: 20120515
  2. QUINAPRIL [Concomitant]
     Indication: HYPERTENSION
     Route: 048
  3. CRESTOR [Concomitant]
     Indication: HYPERCHOLESTEROLAEMIA
     Route: 048
  4. ZOLADEX [Suspect]
     Indication: PROSTATE CANCER
     Route: 058
     Dates: start: 20070101
  5. TARKA [Concomitant]
     Indication: HYPERTENSION
     Route: 048
  6. FLUTICASONE PROPIONATE/SALMETEROL [Concomitant]
     Indication: ASTHMA
     Route: 048

REACTIONS (15)
  - NECK PAIN [None]
  - OCULAR DISCOMFORT [None]
  - ASTHENOPIA [None]
  - GAIT DISTURBANCE [None]
  - PARAESTHESIA [None]
  - MYALGIA [None]
  - BLOOD PRESSURE INCREASED [None]
  - HEART RATE INCREASED [None]
  - HYPERACUSIS [None]
  - SUICIDAL IDEATION [None]
  - JOINT STIFFNESS [None]
  - FATIGUE [None]
  - MUSCULAR WEAKNESS [None]
  - EXOPHTHALMOS [None]
  - AGGRESSION [None]
